FAERS Safety Report 7892772-9 (Version None)
Quarter: 2011Q4

REPORT INFORMATION
  Report Type: 
  Country: None (occurrence: None)
  Receive Date: 20111104
  Receipt Date: 20111026
  Transmission Date: 20120403
  Serious: Yes (Hospitalization)
  Sender: FDA-Public Use
  Company Number: US-BAYER-201040126NA

PATIENT
  Age: 30 Year
  Sex: Female
  Weight: 93 kg

DRUGS (10)
  1. BISMUTH SUBSALICYLATE [Concomitant]
  2. ZEGRIM [Concomitant]
  3. CALCIUM CARBONATE [Concomitant]
  4. YAZ [Suspect]
     Indication: CONTRACEPTION
     Dosage: UNK
     Route: 048
     Dates: start: 20050101, end: 20100101
  5. YAZ [Suspect]
     Indication: PREMENSTRUAL SYNDROME
  6. LEVAQUIN [Concomitant]
  7. YAZ [Suspect]
     Indication: MIGRAINE
     Dosage: UNK
     Route: 048
     Dates: start: 20060501, end: 20100401
  8. ZOMIG [Concomitant]
     Dosage: UNK
     Dates: start: 20000101
  9. IMITREX [Concomitant]
     Dosage: UNK
     Dates: start: 20000101
  10. PERCOCET [Concomitant]
     Indication: PAIN

REACTIONS (3)
  - CHOLECYSTITIS ACUTE [None]
  - CHOLELITHIASIS [None]
  - GALLBLADDER DISORDER [None]
